FAERS Safety Report 20089272 (Version 1)
Quarter: 2021Q4

REPORT INFORMATION
  Report Type: Spontaneous
  Country: US (occurrence: US)
  Receive Date: 20211119
  Receipt Date: 20211119
  Transmission Date: 20220303
  Serious: Yes (Hospitalization, Other)
  Sender: FDA-Public Use
  Company Number: US-Accord-245360

PATIENT
  Age: 64 Year
  Sex: Male
  Weight: 110.22 kg

DRUGS (1)
  1. TEMOZOLOMIDE [Suspect]
     Active Substance: TEMOZOLOMIDE
     Indication: Brain neoplasm malignant
     Dosage: DOSE: 100 MG CAPSULE, 3 CAPSULES DAILY FOR 7 DAYS PER 28 DAY CYCLE
     Dates: start: 20211021, end: 20211111

REACTIONS (4)
  - Neutropenia [Unknown]
  - Thrombocytopenia [Unknown]
  - Sepsis [Unknown]
  - Off label use [Unknown]
